FAERS Safety Report 12262724 (Version 1)
Quarter: 2016Q2

REPORT INFORMATION
  Report Type: Report from Study
  Country: NO (occurrence: NO)
  Receive Date: 20160413
  Receipt Date: 20160413
  Transmission Date: 20160815
  Serious: Yes (Other)
  Sender: FDA-Public Use
  Company Number: NO-ROCHE-1740719

PATIENT

DRUGS (2)
  1. GEMCITABINE [Suspect]
     Active Substance: GEMCITABINE\GEMCITABINE HYDROCHLORIDE
     Indication: BILIARY CANCER METASTATIC
     Dosage: DAY 1 AND 8
     Route: 065
  2. CAPECITABINE. [Suspect]
     Active Substance: CAPECITABINE
     Indication: BILIARY CANCER METASTATIC
     Route: 065

REACTIONS (3)
  - Atrial fibrillation [Unknown]
  - Myocardial infarction [Unknown]
  - Cholangitis [Unknown]
